FAERS Safety Report 7669323-7 (Version None)
Quarter: 2011Q3

REPORT INFORMATION
  Report Type: 
  Country: None (occurrence: None)
  Receive Date: 20110808
  Receipt Date: 20110803
  Transmission Date: 20111222
  Serious: Yes (Hospitalization)
  Sender: FDA-Public Use
  Company Number: PHHY2011CA70300

PATIENT
  Sex: Female

DRUGS (4)
  1. ZOLEDRONOC ACID [Suspect]
     Dosage: UNK
     Dates: start: 20100617
  2. ZOLEDRONOC ACID [Suspect]
     Dosage: UNK
     Dates: start: 20110712
  3. ZOLEDRONOC ACID [Suspect]
     Dosage: UNK
     Dates: start: 20090604
  4. ZOLEDRONOC ACID [Suspect]
     Indication: OSTEOPOROSIS
     Dosage: UNK
     Dates: start: 20080604

REACTIONS (4)
  - PNEUMONIA [None]
  - ANAEMIA [None]
  - FUNGAL INFECTION [None]
  - HERPES ZOSTER [None]
